FAERS Safety Report 15877176 (Version 2)
Quarter: 2019Q1

REPORT INFORMATION
  Report Type: Report from Study
  Country: IN (occurrence: IN)
  Receive Date: 20190128
  Receipt Date: 20190206
  Transmission Date: 20190417
  Serious: Yes (Other)
  Sender: FDA-Public Use
  Company Number: IN-SAKK-2019SA016031AA

PATIENT
  Age: 76 Year
  Sex: Female
  Weight: 71 kg

DRUGS (1)
  1. INSULIN GLARGINE [Suspect]
     Active Substance: INSULIN GLARGINE
     Indication: DIABETES MELLITUS
     Dosage: 24 U, QD
     Route: 058
     Dates: start: 20181218

REACTIONS (4)
  - Cardiac disorder [Fatal]
  - Hyperglycaemia [Unknown]
  - Renal disorder [Fatal]
  - Hypertension [Unknown]
